FAERS Safety Report 6103971-0 (Version None)
Quarter: 2009Q1

REPORT INFORMATION
  Report Type: 
  Country: None (occurrence: None)
  Receive Date: 20090305
  Receipt Date: 20090225
  Transmission Date: 20090719
  Serious: Yes (Death, Hospitalization)
  Sender: FDA-Public Use
  Company Number: B0562618A

PATIENT
  Age: 59 Year
  Sex: Male

DRUGS (7)
  1. LAMIVUDINE [Suspect]
     Indication: NON-HODGKIN'S LYMPHOMA
     Dosage: 100MG PER DAY
  2. CYCLOPHOSPHAMIDE [Concomitant]
  3. DOXORUBICIN HCL [Concomitant]
  4. VINCRISTINE [Concomitant]
  5. PREDNISONE [Concomitant]
  6. RITUXIMAB [Concomitant]
  7. RADIOTHERAPY [Concomitant]

REACTIONS (9)
  - ASCITES [None]
  - COMA [None]
  - FATIGUE [None]
  - HEPATIC FAILURE [None]
  - JAUNDICE [None]
  - OEDEMA [None]
  - PATHOGEN RESISTANCE [None]
  - PYREXIA [None]
  - RESPIRATORY FAILURE [None]
